FAERS Safety Report 16785748 (Version 2)
Quarter: 2019Q4

REPORT INFORMATION
  Report Type: Spontaneous
  Country: US (occurrence: US)
  Receive Date: 20190909
  Receipt Date: 20191002
  Transmission Date: 20200122
  Serious: No
  Sender: FDA-Public Use
  Company Number: US-PFIZER INC-2019387007

PATIENT
  Age: 48 Year
  Sex: Female
  Weight: 56.7 kg

DRUGS (3)
  1. PREGABALIN. [Suspect]
     Active Substance: PREGABALIN
     Indication: PAIN IN EXTREMITY
     Dosage: UNK
  2. PREGABALIN. [Suspect]
     Active Substance: PREGABALIN
     Indication: PARAESTHESIA
  3. PREGABALIN. [Suspect]
     Active Substance: PREGABALIN
     Indication: HYPOAESTHESIA

REACTIONS (1)
  - Therapeutic product effect incomplete [Unknown]
